FAERS Safety Report 11270348 (Version 1)
Quarter: 2015Q3

REPORT INFORMATION
  Report Type: Spontaneous
  Country: DE (occurrence: DE)
  Receive Date: 20150714
  Receipt Date: 20150714
  Transmission Date: 20151125
  Serious: Yes (Life-Threatening)
  Sender: FDA-Public Use
  Company Number: DE-PFIZER INC-2015224829

PATIENT
  Age: 51 Year
  Sex: Male
  Weight: 80 kg

DRUGS (3)
  1. ATORVASTATIN CALCIUM. [Suspect]
     Active Substance: ATORVASTATIN CALCIUM
     Indication: LIPIDS INCREASED
     Dosage: 20 MG, 1X/DAY
     Route: 048
     Dates: start: 2014
  2. ROSUVASTATIN [Suspect]
     Active Substance: ROSUVASTATIN
     Indication: LIPIDS INCREASED
     Dosage: 20 MG, DAILY
     Route: 048
     Dates: start: 2014
  3. ASPIRIN. [Concomitant]
     Active Substance: ASPIRIN
     Indication: CORONARY ARTERY DISEASE
     Dosage: 100 MG, DAILY
     Route: 048
     Dates: start: 2013

REACTIONS (1)
  - Myalgia [Recovering/Resolving]

NARRATIVE: CASE EVENT DATE: 2014
